FAERS Safety Report 6650385-0 (Version None)
Quarter: 2010Q1

REPORT INFORMATION
  Report Type: 
  Country: None (occurrence: None)
  Receive Date: 20100325
  Receipt Date: 20100316
  Transmission Date: 20100710
  Serious: Yes (Other)
  Sender: FDA-Public Use
  Company Number: CHPA2010AU05174

PATIENT
  Sex: Female

DRUGS (1)
  1. PRIVATE LABEL (NCH) [Suspect]
     Dosage: 21 MG, QD
     Route: 062
     Dates: start: 20100313, end: 20100315

REACTIONS (4)
  - ABNORMAL DREAMS [None]
  - AGITATION [None]
  - CONFUSIONAL STATE [None]
  - HALLUCINATION [None]
